FAERS Safety Report 9049056 (Version 1)
Quarter: 2013Q1

REPORT INFORMATION
  Report Type: Report from Study
  Country: US (occurrence: US)
  Receive Date: 20130204
  Receipt Date: 20130204
  Transmission Date: 20140127
  Serious: Yes (Hospitalization)
  Sender: FDA-Public Use
  Company Number: US-TEVA-366593USA

PATIENT
  Age: 46 None
  Sex: Male
  Weight: 83.54 kg

DRUGS (6)
  1. GLATIRAMER ACETATE [Suspect]
     Indication: MULTIPLE SCLEROSIS
     Dosage: PC PHASE: 40MG 3 TIMES  A WEEK VS. PLACEBO
     Route: 058
     Dates: start: 20101230, end: 20111221
  2. GLATIRAMER ACETATE [Suspect]
     Dosage: 17.1429 MILLIGRAM DAILY; OPEN LABEL
     Route: 058
     Dates: start: 20111223
  3. METFORMIN [Concomitant]
  4. GLIMEPIRIDE [Concomitant]
  5. HYZAAR [Concomitant]
  6. MARINOL [Concomitant]

REACTIONS (2)
  - Diverticulitis [Recovered/Resolved]
  - Colitis [Recovered/Resolved]
